FAERS Safety Report 4783726-X (Version None)
Quarter: 2005Q3

REPORT INFORMATION
  Report Type: 
  Country: None (occurrence: None)
  Receive Date: 20050929
  Receipt Date: 20050920
  Transmission Date: 20060218
  Serious: Yes (Hospitalization)
  Sender: FDA-Public Use
  Company Number: US-ABBOTT-05P-163-0311496-00

PATIENT
  Sex: Female
  Weight: 53.572 kg

DRUGS (3)
  1. HUMIRA [Suspect]
     Indication: RHEUMATOID ARTHRITIS
     Route: 058
     Dates: start: 20040101, end: 20050115
  2. HUMIRA [Suspect]
     Route: 058
     Dates: start: 20050331, end: 20050417
  3. HUMIRA [Suspect]
     Route: 058
     Dates: start: 20050828

REACTIONS (5)
  - ANIMAL BITE [None]
  - IMPAIRED HEALING [None]
  - MOLE EXCISION [None]
  - PNEUMONIA [None]
  - WOUND NECROSIS [None]
